FAERS Safety Report 5594206-6 (Version None)
Quarter: 2008Q1

REPORT INFORMATION
  Report Type: 
  Country: None (occurrence: None)
  Receive Date: 20080115
  Receipt Date: 20080102
  Transmission Date: 20080703
  Serious: Yes (Hospitalization)
  Sender: FDA-Public Use
  Company Number: E2020-02078-SPO-IE

PATIENT
  Age: 71 Year
  Sex: Male

DRUGS (4)
  1. ARICEPT [Suspect]
     Indication: DEMENTIA ALZHEIMER'S TYPE
     Dosage: 10 MG, 1 IN 1 D, ORAL
     Route: 048
     Dates: start: 20061101, end: 20070101
  2. ATENOLOL [Suspect]
     Indication: HYPERTENSION
     Dosage: 50 MG, ORAL
     Route: 048
     Dates: end: 20070101
  3. OMNEXEL                  (TAMSULOSIN HYDROCHLORIDE) [Concomitant]
  4. NU-SEALS                   (ACETYLSALICYLIC ACID) [Concomitant]

REACTIONS (7)
  - ASTHENIA [None]
  - BRADYCARDIA [None]
  - HEADACHE [None]
  - NAUSEA [None]
  - PALLOR [None]
  - SYNCOPE [None]
  - VISUAL DISTURBANCE [None]
